FAERS Safety Report 15813654 (Version 1)
Quarter: 2019Q1

REPORT INFORMATION
  Report Type: Spontaneous
  Country: IT (occurrence: IT)
  Receive Date: 20190111
  Receipt Date: 20190111
  Transmission Date: 20190417
  Serious: Yes (Hospitalization)
  Sender: FDA-Public Use
  Company Number: IT-JNJFOC-20190109771

PATIENT
  Age: 52 Year
  Sex: Male

DRUGS (2)
  1. CLEXANE [Suspect]
     Active Substance: ENOXAPARIN SODIUM
     Indication: PRODUCT USED FOR UNKNOWN INDICATION
     Route: 065
  2. SERENASE (HALOPERIDOL) [Suspect]
     Active Substance: HALOPERIDOL
     Indication: PSYCHOTIC DISORDER
     Route: 048
     Dates: start: 20171231, end: 20180102

REACTIONS (5)
  - Cerebral haemorrhage [Unknown]
  - Psychomotor hyperactivity [Unknown]
  - Fall [Unknown]
  - Dysarthria [Unknown]
  - Language disorder [Unknown]

NARRATIVE: CASE EVENT DATE: 20180102
